FAERS Safety Report 16259754 (Version 3)
Quarter: 2019Q2

REPORT INFORMATION
  Report Type: Spontaneous
  Country: BR (occurrence: BR)
  Receive Date: 20190501
  Receipt Date: 20190516
  Transmission Date: 20190711
  Serious: Yes (Other)
  Sender: FDA-Public Use
  Company Number: BR-B.I. PHARMACEUTICALS,INC./RIDGEFIELD-2019-MI-000292

PATIENT
  Age: 66 Year
  Sex: Female
  Weight: 69 kg

DRUGS (5)
  1. ATROVENT [Suspect]
     Active Substance: IPRATROPIUM BROMIDE
     Indication: PNEUMONIA
     Dosage: LIQUID DROPS
     Route: 055
     Dates: start: 20190419, end: 20190421
  2. BEROTEC [Suspect]
     Active Substance: FENOTEROL HYDROBROMIDE
     Indication: PNEUMONIA
     Dosage: DROPS
     Route: 055
     Dates: start: 20190419, end: 20190421
  3. TYLENOL [Concomitant]
     Active Substance: ACETAMINOPHEN
     Indication: HEADACHE
     Route: 048
     Dates: start: 20190422
  4. NOVAMOX [Concomitant]
     Active Substance: AMOXICILLIN
     Indication: PNEUMONIA
     Route: 048
     Dates: start: 20190420, end: 20190421
  5. MUCOSOLVAN [Concomitant]
     Active Substance: AMBROXOL HYDROCHLORIDE
     Indication: PRODUCT USED FOR UNKNOWN INDICATION
     Route: 048
     Dates: start: 20190420, end: 20190421

REACTIONS (15)
  - Tremor [Recovered/Resolved]
  - Deafness [Recovered/Resolved]
  - Nervousness [Not Recovered/Not Resolved]
  - Lip swelling [Recovered/Resolved]
  - Skin wound [Not Recovered/Not Resolved]
  - Vision blurred [Not Recovered/Not Resolved]
  - Head titubation [Recovered/Resolved]
  - Lip blister [Not Recovered/Not Resolved]
  - Swelling face [Recovered/Resolved]
  - Dyspnoea [Recovered/Resolved]
  - Pneumonia [Unknown]
  - Off label use [Unknown]
  - Tremor [Recovered/Resolved]
  - Erythema [Recovered/Resolved]
  - Skin injury [Recovered/Resolved]

NARRATIVE: CASE EVENT DATE: 20190419
